FAERS Safety Report 14840785 (Version 1)
Quarter: 2018Q2

REPORT INFORMATION
  Report Type: Spontaneous
  Country: US (occurrence: US)
  Receive Date: 20180503
  Receipt Date: 20180503
  Transmission Date: 20180711
  Serious: No
  Sender: FDA-Public Use
  Company Number: US-PFIZER INC-2018179253

PATIENT
  Age: 66 Year
  Sex: Female
  Weight: 90.26 kg

DRUGS (5)
  1. NEURONTIN [Suspect]
     Active Substance: GABAPENTIN
     Dosage: 300 MG, DAILY (ON THE FIRST DAY)
  2. INSULIN [Concomitant]
     Active Substance: INSULIN NOS
     Indication: DIABETES MELLITUS
     Dosage: UNK
  3. NEURONTIN [Suspect]
     Active Substance: GABAPENTIN
     Dosage: 600 MG, 3X/DAY EVERY 8 HOURS
     Dates: start: 20180409
  4. NEURONTIN [Suspect]
     Active Substance: GABAPENTIN
     Dosage: DAYS 4 -6 ONE EVERY 12 HOURS
  5. NEURONTIN [Suspect]
     Active Substance: GABAPENTIN
     Dosage: 300 MG, 1X/DAY

REACTIONS (1)
  - Drug ineffective [Unknown]
